FAERS Safety Report 19720025 (Version 1)
Quarter: 2021Q3

REPORT INFORMATION
  Report Type: Spontaneous
  Country: US (occurrence: US)
  Receive Date: 20210819
  Receipt Date: 20210819
  Transmission Date: 20211014
  Serious: Yes (Hospitalization)
  Sender: FDA-Public Use
  Company Number: None

PATIENT
  Age: 76 Year
  Sex: Male
  Weight: 75.3 kg

DRUGS (1)
  1. CARVEDILOL (CARVEDILOL 25MG TAB) [Suspect]
     Active Substance: CARVEDILOL
     Indication: CORONARY ARTERIAL STENT INSERTION
     Route: 048
     Dates: start: 20210127, end: 20210525

REACTIONS (3)
  - Dizziness [None]
  - Sinus bradycardia [None]
  - Nodal rhythm [None]

NARRATIVE: CASE EVENT DATE: 20210525
